FAERS Safety Report 4355525-4 (Version None)
Quarter: 2004Q2

REPORT INFORMATION
  Report Type: 
  Country: None (occurrence: None)
  Receive Date: 20040503
  Receipt Date: 20030929
  Transmission Date: 20050107
  Serious: Yes (Hospitalization)
  Sender: FDA-Public Use
  Company Number: PHEH2003US06953

PATIENT
  Age: 35 Year
  Sex: Female
  Weight: 120.6 kg

DRUGS (4)
  1. LOTREL [Suspect]
     Indication: HYPERTENSION
     Dosage: 5 MG AMLOD/10MG BENAZ/ QD, ORAL
     Route: 048
     Dates: start: 20030122, end: 20030630
  2. SYNTHROID [Concomitant]
  3. EFEXOR XR (VENLAFAXINE) [Concomitant]
  4. ELAVIL [Concomitant]

REACTIONS (5)
  - ABDOMINAL PAIN [None]
  - ANGIONEUROTIC OEDEMA [None]
  - NAUSEA [None]
  - SMALL BOWEL ANGIOEDEMA [None]
  - VOMITING [None]
